FAERS Safety Report 17468936 (Version 1)
Quarter: 2020Q1

REPORT INFORMATION
  Report Type: Report from Study
  Country: US (occurrence: US)
  Receive Date: 20200227
  Receipt Date: 20200227
  Transmission Date: 20200409
  Serious: No
  Sender: FDA-Public Use
  Company Number: US-AEGERION PHARMACEUTICAL, INC-AEGR004479

PATIENT
  Age: 40 Year
  Sex: Female
  Weight: 60.3 kg

DRUGS (26)
  1. LANTUS [Concomitant]
     Active Substance: INSULIN GLARGINE
     Indication: DIABETES MELLITUS
     Dosage: 40 UNITS, QD
     Route: 058
     Dates: start: 20141231, end: 20150415
  2. LANTUS [Concomitant]
     Active Substance: INSULIN GLARGINE
     Dosage: 25 UNITS, OD
     Route: 058
     Dates: start: 20150415, end: 2017
  3. IMMUNOGLOBULINS NOS [Concomitant]
     Active Substance: IMMUNE GLOBULIN NOS
     Indication: IMMUNODEFICIENCY COMMON VARIABLE
     Dosage: 50 G, EVERY 3 WEEKS
     Route: 042
  4. LEVOTHYROXINE. [Concomitant]
     Active Substance: LEVOTHYROXINE
     Dosage: 450 ?G, 3 DAYS A WEEK
     Route: 048
     Dates: start: 20150415, end: 20171122
  5. SALICYLIC ACID. [Concomitant]
     Active Substance: SALICYLIC ACID
     Indication: SKIN PAPILLOMA
     Dosage: 1 DF, QOD
     Route: 061
     Dates: start: 20150409, end: 201504
  6. MULTIVITAMIN                       /07504101/ [Concomitant]
     Active Substance: VITAMINS
     Indication: SUPPLEMENTATION THERAPY
     Dosage: 1 DF, QD
     Route: 048
     Dates: start: 2018
  7. ERGOCALCIFEROL. [Concomitant]
     Active Substance: ERGOCALCIFEROL
     Dosage: 50000 IU WEEKLY
     Route: 048
     Dates: start: 20170104, end: 201809
  8. METRELEPTIN [Suspect]
     Active Substance: METRELEPTIN
     Indication: LIPODYSTROPHY ACQUIRED
     Dosage: UNK
     Dates: start: 2006
  9. LEVOTHYROXINE. [Concomitant]
     Active Substance: LEVOTHYROXINE
     Indication: HYPOTHYROIDISM
     Dosage: 300 ?G, 4 DAYS A WEEK
     Route: 048
     Dates: start: 20150415, end: 20171122
  10. INSULIN LISPRO [Concomitant]
     Active Substance: INSULIN LISPRO
     Indication: DIABETES MELLITUS
     Dosage: 45 UNITS, OD
     Dates: start: 2014, end: 2018
  11. METRELEPTIN [Suspect]
     Active Substance: METRELEPTIN
     Dosage: 5 MG, QD
     Dates: start: 20141231
  12. CETIRIZINE [Concomitant]
     Active Substance: CETIRIZINE HYDROCHLORIDE
     Indication: URTICARIA
     Dosage: 10 MG, PRN
     Route: 048
     Dates: end: 2014
  13. CYANOCOBALAMIN. [Concomitant]
     Active Substance: CYANOCOBALAMIN
     Indication: VITAMIN B12 DECREASED
     Dosage: 1 DF, OD
     Route: 048
     Dates: end: 20150708
  14. LEVAQUIN [Concomitant]
     Active Substance: LEVOFLOXACIN
     Indication: PNEUMONIA
     Dosage: 500 MG, OD
     Route: 048
     Dates: start: 20150211, end: 20150225
  15. CYANOCOBALAMIN. [Concomitant]
     Active Substance: CYANOCOBALAMIN
     Dosage: 4 UG, MONTHLY
     Route: 058
     Dates: start: 20150708, end: 201508
  16. ERGOCALCIFEROL. [Concomitant]
     Active Substance: ERGOCALCIFEROL
     Indication: SUPPLEMENTATION THERAPY
     Dosage: 5000 UNITS, OD
     Route: 048
     Dates: start: 20170104, end: 20170104
  17. DOXYCYCLINE. [Concomitant]
     Active Substance: DOXYCYCLINE
     Indication: IMMUNODEFICIENCY COMMON VARIABLE
     Dosage: 100 MG, BID
     Route: 048
     Dates: start: 20180214, end: 20180228
  18. ZITHROMAX [Concomitant]
     Active Substance: AZITHROMYCIN DIHYDRATE
     Indication: IMMUNODEFICIENCY COMMON VARIABLE
     Dosage: 500 MG, QD
     Route: 048
     Dates: start: 2014, end: 2016
  19. ZITHROMAX [Concomitant]
     Active Substance: AZITHROMYCIN DIHYDRATE
     Dosage: 250 MG, 3 TIMES PER WEEK
     Route: 048
     Dates: start: 201710, end: 201801
  20. CYANOCOBALAMIN. [Concomitant]
     Active Substance: CYANOCOBALAMIN
     Dosage: 1 MG, QD
     Route: 030
     Dates: start: 20150708, end: 20150708
  21. NASACORT [Concomitant]
     Active Substance: TRIAMCINOLONE ACETONIDE
     Indication: PNEUMONIA
     Dosage: 1 DF, BID
     Route: 045
     Dates: start: 20150211, end: 201502
  22. LEVOTHYROXINE. [Concomitant]
     Active Substance: LEVOTHYROXINE
     Dosage: 350 UG, 4 TIMES PER WEEK
     Route: 048
     Dates: start: 20171123
  23. LEVOTHYROXINE. [Concomitant]
     Active Substance: LEVOTHYROXINE
     Dosage: 450 UG, 3 DAYS A WEEK
     Route: 048
     Dates: start: 20171123
  24. ZITHROMAX [Concomitant]
     Active Substance: AZITHROMYCIN DIHYDRATE
     Indication: PNEUMONIA
     Dosage: 2 PACKS AS NEEDED
     Dates: start: 201501, end: 201502
  25. LANTUS [Concomitant]
     Active Substance: INSULIN GLARGINE
     Dosage: 10 UNITS, PRN
     Route: 058
     Dates: start: 2017
  26. NOVOLOG [Concomitant]
     Active Substance: INSULIN ASPART
     Indication: DIABETES MELLITUS
     Dosage: 70 UNITS, BID
     Route: 058
     Dates: start: 201809

REACTIONS (1)
  - Herpes zoster [Recovered/Resolved]

NARRATIVE: CASE EVENT DATE: 20190528
